FAERS Safety Report 9725917 (Version 4)
Quarter: 2014Q2

REPORT INFORMATION
  Report Type: Report from Study
  Country: JP (occurrence: JP)
  Receive Date: 20131203
  Receipt Date: 20140417
  Transmission Date: 20141212
  Serious: Yes (Other)
  Sender: FDA-Public Use
  Company Number: JP-JNJFOC-20130900549

PATIENT
  Age: 49 Year
  Sex: Female
  Weight: 59 kg

DRUGS (18)
  1. SIMPONI [Suspect]
     Indication: RHEUMATOID ARTHRITIS
     Route: 058
     Dates: start: 20120204, end: 20120204
  2. SIMPONI [Suspect]
     Indication: RHEUMATOID ARTHRITIS
     Route: 058
     Dates: start: 20120501
  3. SIMPONI [Suspect]
     Indication: RHEUMATOID ARTHRITIS
     Route: 058
     Dates: start: 20111203, end: 20111203
  4. SIMPONI [Suspect]
     Indication: RHEUMATOID ARTHRITIS
     Route: 058
     Dates: start: 20120303, end: 20120303
  5. SIMPONI [Suspect]
     Indication: RHEUMATOID ARTHRITIS
     Route: 058
     Dates: start: 20120331, end: 20120331
  6. SIMPONI [Suspect]
     Indication: RHEUMATOID ARTHRITIS
     Route: 058
     Dates: start: 20120107, end: 20120107
  7. HYDRA [Concomitant]
     Indication: PROPHYLAXIS
     Route: 048
     Dates: start: 20111112, end: 20120106
  8. HYDRA [Concomitant]
     Indication: PROPHYLAXIS
     Route: 048
     Dates: start: 20120107, end: 20120721
  9. AZULFIDINE-EN [Concomitant]
     Indication: RHEUMATOID ARTHRITIS
     Route: 048
     Dates: start: 20091108, end: 20120106
  10. METHOTREXATE [Concomitant]
     Indication: RHEUMATOID ARTHRITIS
     Route: 065
     Dates: end: 20111112
  11. METHOTREXATE [Concomitant]
     Indication: RHEUMATOID ARTHRITIS
     Route: 065
     Dates: start: 20111113
  12. PREDNISOLONE [Concomitant]
     Indication: RHEUMATOID ARTHRITIS
     Route: 048
     Dates: end: 20120224
  13. VOLTAREN [Concomitant]
     Indication: RHEUMATOID ARTHRITIS
     Route: 048
  14. TOYOFAROL [Concomitant]
     Route: 048
  15. FOLIAMIN [Concomitant]
     Indication: PROPHYLAXIS
     Route: 048
  16. PARIET [Concomitant]
     Route: 048
  17. PYDOXAL [Concomitant]
     Indication: PROPHYLAXIS
     Route: 048
  18. FERROMIA [Concomitant]
     Indication: IRON DEFICIENCY ANAEMIA
     Route: 048

REACTIONS (6)
  - Cellulitis [Recovered/Resolved]
  - Contusion [Recovered/Resolved]
  - Fall [Recovered/Resolved]
  - Bronchitis [Recovered/Resolved]
  - Hepatic function abnormal [Recovered/Resolved]
  - Contusion [Recovered/Resolved]
